FAERS Safety Report 4622593-1 (Version None)
Quarter: 2005Q1

REPORT INFORMATION
  Report Type: 
  Country: None (occurrence: None)
  Receive Date: 20050325
  Receipt Date: 20050325
  Transmission Date: 20050727
  Serious: Yes (Hospitalization)
  Sender: FDA-Public Use
  Company Number: None

PATIENT
  Age: 77 Year
  Sex: Male

DRUGS (12)
  1. AMIKACIN [Suspect]
     Indication: PROTEUS INFECTION
     Dosage: 800MG  IV Q24
     Route: 042
     Dates: start: 20041216, end: 20050110
  2. AMIKACIN [Suspect]
     Indication: STAPHYLOCOCCAL INFECTION
     Dosage: 800MG  IV Q24
     Route: 042
     Dates: start: 20041216, end: 20050110
  3. AMIKACIN [Suspect]
     Indication: URINARY TRACT INFECTION
     Dosage: 800MG  IV Q24
     Route: 042
     Dates: start: 20041216, end: 20050110
  4. CEFEPIME IV [Suspect]
     Indication: PROTEUS INFECTION
     Dosage: 1GM  Q24
     Dates: start: 20041220, end: 20050110
  5. CEFEPIME IV [Suspect]
     Indication: STAPHYLOCOCCAL INFECTION
     Dosage: 1GM  Q24
     Dates: start: 20041220, end: 20050110
  6. CEFEPIME IV [Suspect]
     Indication: URINARY TRACT INFECTION
     Dosage: 1GM  Q24
     Dates: start: 20041220, end: 20050110
  7. PLAVIX [Concomitant]
  8. CLONIDINE [Concomitant]
  9. ASPIRIN [Concomitant]
  10. FELODIPINE [Concomitant]
  11. FOLATE [Concomitant]
  12. OMEPRAZOLE [Concomitant]

REACTIONS (3)
  - HYPERKALAEMIA [None]
  - NEPHRITIS INTERSTITIAL [None]
  - RENAL FAILURE ACUTE [None]
